FAERS Safety Report 24688724 (Version 1)
Quarter: 2024Q4

REPORT INFORMATION
  Report Type: Spontaneous
  Country: JP (occurrence: JP)
  Receive Date: 20241203
  Receipt Date: 20241203
  Transmission Date: 20250115
  Serious: Yes (Other)
  Sender: JOHNSON AND JOHNSON
  Company Number: JP-NShinyaku-EVA20240820401001307081

PATIENT
  Age: 9 Decade
  Sex: Male

DRUGS (3)
  1. SELEXIPAG [Suspect]
     Active Substance: SELEXIPAG
     Indication: Pulmonary arterial hypertension
     Dosage: UNKNOWN
     Route: 048
     Dates: start: 20241001, end: 2024
  2. SELEXIPAG [Suspect]
     Active Substance: SELEXIPAG
     Dosage: UNKNOWN, INCREASE
     Route: 048
     Dates: start: 2024, end: 2024
  3. SELEXIPAG [Suspect]
     Active Substance: SELEXIPAG
     Dosage: UNKNOWN, REDUCE
     Route: 048
     Dates: start: 202411

REACTIONS (1)
  - Pulmonary congestion [Unknown]

NARRATIVE: CASE EVENT DATE: 20241118
